FAERS Safety Report 7472473-1 (Version None)
Quarter: 2011Q2

REPORT INFORMATION
  Report Type: 
  Country: None (occurrence: None)
  Receive Date: 20110511
  Receipt Date: 20110428
  Transmission Date: 20111010
  Serious: Yes (Other)
  Sender: FDA-Public Use
  Company Number: PHHY2011JP09924

PATIENT
  Sex: Male
  Weight: 43 kg

DRUGS (10)
  1. DIART [Suspect]
     Dosage: 15 MG, DAILY
     Route: 048
     Dates: start: 20100805, end: 20100812
  2. ARTIST [Concomitant]
     Indication: HYPERTENSION
     Dosage: 5 MG, UNK
     Route: 048
     Dates: start: 20100513
  3. DIART [Suspect]
     Dosage: 15 MG, DAILY
     Route: 048
     Dates: start: 20100907, end: 20100913
  4. TEKTURNA [Suspect]
     Dosage: 150 MG, DAILY
     Route: 048
     Dates: start: 20100914, end: 20101006
  5. ALOSITOL [Concomitant]
     Dosage: 100 MG, UNK
     Route: 048
     Dates: start: 20100513
  6. TEKTURNA [Suspect]
     Dosage: 150 MG, DAILY
     Route: 048
     Dates: start: 20100624, end: 20100812
  7. DIART [Suspect]
     Indication: HYPERTENSION
     Dosage: 30 MG, DAILY
     Route: 048
     Dates: start: 20100513, end: 20100804
  8. TEKTURNA [Suspect]
     Dosage: 150 MG, DAILY
     Route: 048
     Dates: start: 20101130, end: 20110112
  9. DIART [Suspect]
     Dosage: 30 MG, DAILY
     Route: 048
     Dates: start: 20100914, end: 20110112
  10. CONIEL [Concomitant]
     Indication: HYPERTENSION
     Dosage: 2 MG, UNK
     Route: 048
     Dates: start: 20100513, end: 20100623

REACTIONS (5)
  - HYPERKALAEMIA [None]
  - CARDIAC FAILURE [None]
  - BLOOD CREATININE INCREASED [None]
  - BLOOD UREA INCREASED [None]
  - DEHYDRATION [None]
